FAERS Safety Report 8222444-2 (Version None)
Quarter: 2012Q1

REPORT INFORMATION
  Report Type: 
  Country: None (occurrence: None)
  Receive Date: 20120320
  Receipt Date: 20120315
  Transmission Date: 20120608
  Serious: Yes (Life-Threatening, Hospitalization, Other)
  Sender: FDA-Public Use
  Company Number: PHHY2010CA26608

PATIENT
  Sex: Female
  Weight: 63.6 kg

DRUGS (33)
  1. HORMONES [Concomitant]
     Dosage: UNK UKN, UNK
  2. IMDUR [Concomitant]
     Dosage: 60 MG, UNK
  3. ATORVASTATIN [Concomitant]
     Dosage: 40 MG, UNK
  4. DOCUSATE SODIUM [Concomitant]
     Dosage: 100 MG, UNK
  5. LEVETIRACETAM [Concomitant]
     Dosage: 250 MG, UNK
  6. OXYCONTIN [Concomitant]
     Dosage: 5 MG, UNK
  7. LIPITOR [Concomitant]
     Dosage: 40 MG, UNK
  8. ASPIRIN [Concomitant]
     Dosage: 80 MG, UNK
  9. ACETAMINOPHEN W/ CODEINE [Concomitant]
     Dosage: UNK DF (500 MG/8MG) QID
  10. PANTOPRAZOLE [Concomitant]
     Dosage: 40 MG, UNK
  11. EVISTA [Concomitant]
     Dosage: 670 MG, UNK
  12. CLONAZEPAM [Concomitant]
     Dosage: 0.5 MG, UNK
  13. NEXIUM [Concomitant]
     Dosage: 40 MG, UNK
  14. ACETAMINOPHEN [Concomitant]
     Dosage: 500 MG, UNK
  15. FORTEO [Concomitant]
     Dosage: UNK UKN, UNK
  16. ELAVIL [Concomitant]
     Dosage: 50 MG, UNK
  17. M CAL D [Concomitant]
     Dosage: 1 DF,  (500 MG+400 IU)
  18. DIDROCAL [Concomitant]
     Dosage: 400 MG, UNK
  19. PANTOPRAZOLE SODIUM [Concomitant]
     Dosage: 40 MG, UNK
  20. CALCIUM WITH VITAMIN D [Concomitant]
     Dosage: 500 MG, BID
  21. NITROGLYCERIN [Concomitant]
     Dosage: 0.4 MG/EAM
  22. OXAZEPAM [Concomitant]
     Dosage: 30 MG, UNK
  23. FORZA-10 [Concomitant]
     Dosage: UNK UKN, UNK
  24. METOPROLOL SUCCINATE [Concomitant]
     Dosage: 25 MG, UNK
  25. CALCIUM CARBONATE [Concomitant]
     Dosage: 500 MG, BID
  26. SULFATE FERREUX [Concomitant]
     Dosage: UNK UKN, UNK
  27. TEMAZEPAM [Concomitant]
     Dosage: 30 MG, UNK
  28. ZOLEDRONOC ACID [Suspect]
     Indication: OSTEOPOROSIS
     Dosage: 5 MG,(YEARLY) UNK
     Route: 042
     Dates: start: 20091123
  29. PAROXETINE HCL [Concomitant]
     Dosage: 20 MG, UNK
  30. MIACALCIN [Concomitant]
     Dosage: UNK UKN, UNK
  31. VITAMIN D [Concomitant]
     Dosage: 400 IU, BID
  32. PLAVIX [Concomitant]
     Dosage: 75 MG, UNK
  33. PAROXETINE HCL [Concomitant]
     Dosage: 30 MG, UNK

REACTIONS (7)
  - VENOUS OCCLUSION [None]
  - HEADACHE [None]
  - CEREBRAL HAEMORRHAGE [None]
  - HEAD INJURY [None]
  - MYALGIA [None]
  - INFLUENZA LIKE ILLNESS [None]
  - FALL [None]
